FAERS Safety Report 8293292 (Version 6)
Quarter: 2013Q3

REPORT INFORMATION
  Report Type: Spontaneous
  Country: US (occurrence: US)
  Receive Date: 20111215
  Receipt Date: 20130813
  Transmission Date: 20140515
  Serious: Yes (Hospitalization)
  Sender: FDA-Public Use
  Company Number: US-GENZYME-FABR-1002279

PATIENT
  Age: 28 Year
  Sex: Female
  Weight: 55.33 kg

DRUGS (5)
  1. FABRAZYME [Suspect]
     Indication: FABRY^S DISEASE
     Dosage: 25 MG, Q2W
     Route: 042
     Dates: start: 20110606
  2. FABRAZYME [Suspect]
     Dosage: 30 MG, Q2W
     Route: 042
     Dates: start: 20110606
  3. GABAPENTIN [Concomitant]
     Indication: FABRY^S DISEASE
     Dosage: 300 MG, TID
     Route: 065
     Dates: start: 20110912
  4. RITALIN [Concomitant]
     Indication: NARCOLEPSY
     Dosage: 20 MG, QD
     Route: 065
     Dates: start: 20110915
  5. RITALIN [Concomitant]
     Indication: FATIGUE

REACTIONS (1)
  - Anaphylactic reaction [Recovered/Resolved with Sequelae]
